FAERS Safety Report 24833987 (Version 2)
Quarter: 2025Q1

REPORT INFORMATION
  Report Type: Spontaneous
  Country: US (occurrence: US)
  Receive Date: 20250112
  Receipt Date: 20250120
  Transmission Date: 20250409
  Serious: Yes (Hospitalization, Congenital Anomaly, Other)
  Sender: JOHNSON AND JOHNSON
  Company Number: US-JNTL CONSUMER HEALTH MIDDLE EAST FZ-LLC-20250101712

PATIENT

DRUGS (1)
  1. ACETAMINOPHEN [Suspect]
     Active Substance: ACETAMINOPHEN
     Indication: Headache
     Route: 064

REACTIONS (4)
  - Ductus arteriosus stenosis foetal [Unknown]
  - Foetal exposure during pregnancy [Unknown]
  - Tricuspid valve incompetence [Unknown]
  - Right ventricular dilatation [Unknown]
